FAERS Safety Report 7860522-8 (Version None)
Quarter: 2011Q4

REPORT INFORMATION
  Report Type: 
  Country: None (occurrence: None)
  Receive Date: 20111027
  Receipt Date: 20111024
  Transmission Date: 20120403
  Serious: No
  Sender: FDA-Public Use
  Company Number: US-PFIZER INC-2011236844

PATIENT
  Sex: Female
  Weight: 92.971 kg

DRUGS (9)
  1. CYTOMEL [Concomitant]
     Indication: THYROID DISORDER
     Dosage: UNK
     Route: 048
  2. SYNTHROID [Concomitant]
     Dosage: UNK
  3. ALPRAZOLAM [Concomitant]
     Dosage: UNK
  4. PRISTIQ [Suspect]
     Indication: MAJOR DEPRESSION
     Dosage: 50 MG, ALTERNATE DAY
     Route: 048
     Dates: start: 20110923, end: 20111014
  5. TRIAMCINOLONE [Concomitant]
     Dosage: UNK
  6. VITAMIN D [Concomitant]
     Dosage: UNK
  7. VITAMIN E [Concomitant]
     Dosage: UNK
  8. LEVOTHYROXINE [Concomitant]
     Indication: THYROID DISORDER
     Dosage: UNK
     Route: 048
  9. OMEPRAZOLE [Concomitant]
     Dosage: UNK

REACTIONS (4)
  - TREMOR [None]
  - ANXIETY [None]
  - AGITATION [None]
  - THYROID FUNCTION TEST ABNORMAL [None]
